FAERS Safety Report 5355400-2 (Version None)
Quarter: 2007Q2

REPORT INFORMATION
  Report Type: 
  Country: None (occurrence: None)
  Receive Date: 20070611
  Receipt Date: 20070611
  Transmission Date: 20071010
  Serious: No
  Sender: FDA-Public Use
  Company Number: None

PATIENT
  Age: 71 Year
  Sex: Male
  Weight: 90.7194 kg

DRUGS (3)
  1. FLUOXETINE [Suspect]
     Indication: ANXIETY
     Dosage: 20MG QD ORAL
     Route: 048
     Dates: start: 20061208
  2. FLUOXETINE [Suspect]
  3. FLUOXETINE [Suspect]

REACTIONS (2)
  - ANXIETY [None]
  - DRUG INEFFECTIVE [None]
